FAERS Safety Report 21480103 (Version 2)
Quarter: 2022Q4

REPORT INFORMATION
  Report Type: Spontaneous
  Country: DE (occurrence: DE)
  Receive Date: 20221019
  Receipt Date: 20221118
  Transmission Date: 20230113
  Serious: Yes (Other)
  Sender: FDA-Public Use
  Company Number: DE-AMGEN-DEUSP2022173769

PATIENT
  Age: 69 Year
  Sex: Male
  Weight: 66 kg

DRUGS (4)
  1. BEVACIZUMAB [Suspect]
     Active Substance: BEVACIZUMAB
     Indication: Hepatocellular carcinoma
     Dosage: UNK, FIVE CYCLES
     Route: 040
     Dates: start: 20220228, end: 20220816
  2. SORAFENIB [Suspect]
     Active Substance: SORAFENIB
     Indication: Hepatocellular carcinoma
     Dosage: UNK
     Route: 065
     Dates: start: 20220912
  3. TECENTRIQ [Suspect]
     Active Substance: ATEZOLIZUMAB
     Indication: Hepatocellular carcinoma
     Dosage: UNK, FIVE CYCLES
     Route: 040
     Dates: start: 20220228, end: 20220816
  4. GRANISETRON [Concomitant]
     Active Substance: GRANISETRON
     Dosage: UNK

REACTIONS (5)
  - Hepatocellular carcinoma [Unknown]
  - Skin toxicity [Not Recovered/Not Resolved]
  - Rash pruritic [Recovering/Resolving]
  - Off label use [Unknown]
  - Drug ineffective [Unknown]

NARRATIVE: CASE EVENT DATE: 20220926
